FAERS Safety Report 19854077 (Version 2)
Quarter: 2021Q4

REPORT INFORMATION
  Report Type: Spontaneous
  Country: US (occurrence: US)
  Receive Date: 20210920
  Receipt Date: 20211027
  Transmission Date: 20220303
  Serious: Yes (Life-Threatening)
  Sender: FDA-Public Use
  Company Number: US-DRREDDYS-SPO/USA/21/0140229

PATIENT
  Age: 72 Year
  Sex: Male

DRUGS (2)
  1. ISOTRETINOIN [Suspect]
     Active Substance: ISOTRETINOIN
     Indication: Dermatitis acneiform
     Dosage: LOW DOSE
  2. AFATINIB [Concomitant]
     Active Substance: AFATINIB
     Indication: Non-small cell lung cancer metastatic

REACTIONS (1)
  - Suicide attempt [Unknown]
